FAERS Safety Report 5168189-7 (Version None)
Quarter: 2006Q4

REPORT INFORMATION
  Report Type: 
  Country: None (occurrence: None)
  Receive Date: 20061130
  Receipt Date: 20061117
  Transmission Date: 20070319
  Serious: Yes (Other)
  Sender: FDA-Public Use
  Company Number: 2006129990

PATIENT
  Age: 55 Year
  Sex: Female

DRUGS (5)
  1. GEODON [Suspect]
     Indication: BIPOLAR DISORDER
     Dosage: 40 MG (20 MG, 2 IN 1 D), ORAL
     Route: 048
     Dates: start: 20060711, end: 20060923
  2. GEODON [Suspect]
     Indication: GENERALISED ANXIETY DISORDER
     Dosage: 40 MG (20 MG, 2 IN 1 D), ORAL
     Route: 048
     Dates: start: 20060711, end: 20060923
  3. GEODON [Suspect]
     Indication: POST-TRAUMATIC STRESS DISORDER
     Dosage: 40 MG (20 MG, 2 IN 1 D), ORAL
     Route: 048
     Dates: start: 20060711, end: 20060923
  4. TRAZODONE HCL [Concomitant]
  5. EFFEXOR XR [Concomitant]

REACTIONS (2)
  - TARDIVE DYSKINESIA [None]
  - TREATMENT NONCOMPLIANCE [None]
